FAERS Safety Report 7512884-9 (Version None)
Quarter: 2011Q2

REPORT INFORMATION
  Report Type: 
  Country: None (occurrence: None)
  Receive Date: 20110531
  Receipt Date: 20101116
  Transmission Date: 20111010
  Serious: No
  Sender: FDA-Public Use
  Company Number: US-NOVEN-ALL1-2010-06029

PATIENT
  Sex: Male
  Weight: 29.932 kg

DRUGS (2)
  1. DAYTRANA [Suspect]
     Dosage: UNK MG, CUT 30 MG PATCH IN 1/3 AND APPLIES 1/3 PATCH)1X/DAY:QD
     Route: 062
     Dates: start: 20070101
  2. ZOLOFT [Concomitant]
     Dosage: 25 MG, 1X/DAY:QD
     Route: 048

REACTIONS (3)
  - WRONG TECHNIQUE IN DRUG USAGE PROCESS [None]
  - NO ADVERSE EVENT [None]
  - PRODUCT QUALITY ISSUE [None]
